FAERS Safety Report 9154743 (Version 3)
Quarter: 2013Q3

REPORT INFORMATION
  Report Type: Spontaneous
  Country: US (occurrence: US)
  Receive Date: 20130311
  Receipt Date: 20130917
  Transmission Date: 20140515
  Serious: No
  Sender: FDA-Public Use
  Company Number: US-PFIZER INC-2013079405

PATIENT
  Age: 72 Year
  Sex: Male
  Weight: 59 kg

DRUGS (5)
  1. ATORVASTATIN CALCIUM [Suspect]
     Indication: BLOOD CHOLESTEROL
     Dosage: 80 MG, DAILY
     Dates: start: 201211
  2. LISINOPRIL [Suspect]
     Indication: BLOOD PRESSURE
     Dosage: 5 MG, DAILY
  3. METOPROLOL [Concomitant]
     Indication: CARDIAC DISORDER
     Dosage: 50 MG, DAILY
  4. BABY ASPIRIN [Concomitant]
     Dosage: 81 MG, UNK
  5. ZETIA [Concomitant]
     Indication: BLOOD CHOLESTEROL
     Dosage: 10 MG, DAILY

REACTIONS (5)
  - Drug ineffective [Not Recovered/Not Resolved]
  - Weight decreased [Unknown]
  - Low density lipoprotein increased [Unknown]
  - High density lipoprotein increased [Unknown]
  - Incorrect dose administered [Unknown]
